FAERS Safety Report 4546236-0 (Version None)
Quarter: 2005Q1

REPORT INFORMATION
  Report Type: 
  Country: None (occurrence: None)
  Receive Date: 20050103
  Receipt Date: 20041221
  Transmission Date: 20050727
  Serious: Yes (Death)
  Sender: FDA-Public Use
  Company Number: 04P-122-0284369-00

PATIENT
  Age: 17 Year
  Sex: Female

DRUGS (1)
  1. MERIDIA [Suspect]
     Dates: end: 20041010

REACTIONS (2)
  - ARRHYTHMIA [None]
  - SUDDEN DEATH [None]
